FAERS Safety Report 6252096-2 (Version None)
Quarter: 2009Q2

REPORT INFORMATION
  Report Type: 
  Country: None (occurrence: None)
  Receive Date: 20090630
  Receipt Date: 20040802
  Transmission Date: 20091009
  Serious: Yes (Hospitalization)
  Sender: FDA-Public Use
  Company Number: US-ROCHE-638958

PATIENT
  Sex: Male

DRUGS (10)
  1. ENFUVIRTIDE [Suspect]
     Route: 065
     Dates: start: 20040219, end: 20070620
  2. AGENERASE [Concomitant]
     Dates: start: 20020930, end: 20060406
  3. EPIVIR [Concomitant]
     Dosage: FREQUENCY REPORTED AS QD
     Dates: start: 20020930, end: 20060406
  4. KALETRA [Concomitant]
     Dates: start: 20020930, end: 20060406
  5. VIREAD [Concomitant]
     Dosage: FREQUENCY REPORTED AS QD
     Dates: start: 20020930, end: 20060406
  6. FLUCONAZOLE [Concomitant]
     Dosage: FREQUENCY REPORTED AS QD
     Dates: start: 19981228, end: 20040701
  7. FLUCONAZOLE [Concomitant]
     Dosage: FREQUENCY REPORTED AS QD
     Dates: start: 20040701, end: 20080814
  8. PENTAMIDINE ISETHIONATE [Concomitant]
     Dosage: DOSE 300 MG, FREQUENCY : Q4 WEEK
     Dates: start: 20010323, end: 20080414
  9. ACYCLOVIR [Concomitant]
     Dosage: FREQUENCY REPORTED AS EVERY 12 HOURS
     Dates: start: 20030611, end: 20080814
  10. PENICILLIN [Concomitant]
     Dosage: DOSE 4 MILLION UNITS; FREQUENCY: Q4 12 HR
     Dates: start: 20040802, end: 20040816

REACTIONS (1)
  - NEUROSYPHILIS [None]
